FAERS Safety Report 22276908 (Version 1)
Quarter: 2023Q2

REPORT INFORMATION
  Report Type: Spontaneous
  Country: TH (occurrence: None)
  Receive Date: 20230503
  Receipt Date: 20230503
  Transmission Date: 20230721
  Serious: Yes (Other)
  Sender: FDA-Public Use
  Company Number: TH-ROCHE-3339767

PATIENT
  Age: 66 Year
  Sex: Male

DRUGS (3)
  1. TECENTRIQ [Suspect]
     Active Substance: ATEZOLIZUMAB
     Indication: Hepatocellular carcinoma
     Dosage: C1-C26 CYCLE
     Route: 065
  2. AVASTIN [Suspect]
     Active Substance: BEVACIZUMAB
     Indication: Hepatocellular carcinoma
     Dosage: C1-C20- 900MG?C21-C26-800MG
     Route: 065
  3. TENOFOVIR [Concomitant]
     Active Substance: TENOFOVIR

REACTIONS (6)
  - Hepatic cirrhosis [Unknown]
  - Portal hypertension [Unknown]
  - Diverticulum intestinal [Unknown]
  - Pulmonary mass [Unknown]
  - Lymphadenopathy [Unknown]
  - Hepatic mass [Unknown]
